FAERS Safety Report 20969671 (Version 1)
Quarter: 2022Q2

REPORT INFORMATION
  Report Type: Spontaneous
  Country: MX (occurrence: MX)
  Receive Date: 20220616
  Receipt Date: 20220616
  Transmission Date: 20220720
  Serious: Yes (Other)
  Sender: FDA-Public Use
  Company Number: MX-BoehringerIngelheim-2022-BI-176563

PATIENT
  Age: 57 Year
  Sex: Female
  Weight: 90.5 kg

DRUGS (6)
  1. LINAGLIPTIN\METFORMIN HYDROCHLORIDE [Suspect]
     Active Substance: LINAGLIPTIN\METFORMIN HYDROCHLORIDE
     Indication: Diabetes mellitus
     Dosage: 2.5/850 MG, 1 TABLET IN THE MORNING AND 1 AT NIGHT
     Route: 048
     Dates: start: 2020, end: 20220524
  2. LANTUS [Concomitant]
     Active Substance: INSULIN GLARGINE
     Indication: Product used for unknown indication
  3. DAPAGLIFLOZIN [Concomitant]
     Active Substance: DAPAGLIFLOZIN
     Indication: Product used for unknown indication
  4. ASPIRINA PROTEC [Concomitant]
     Indication: Product used for unknown indication
  5. PLAVIX [Concomitant]
     Active Substance: CLOPIDOGREL BISULFATE
     Indication: Product used for unknown indication
  6. TELMISARTAN [Concomitant]
     Active Substance: TELMISARTAN
     Indication: Product used for unknown indication

REACTIONS (5)
  - Cerebellar ischaemia [Not Recovered/Not Resolved]
  - Carotid artery occlusion [Unknown]
  - Aneurysm [Unknown]
  - Heart valve incompetence [Unknown]
  - Thrombosis [Unknown]

NARRATIVE: CASE EVENT DATE: 20220506
